FAERS Safety Report 5108625-5 (Version None)
Quarter: 2006Q3

REPORT INFORMATION
  Report Type: 
  Country: None (occurrence: None)
  Receive Date: 20060915
  Receipt Date: 20060831
  Transmission Date: 20061208
  Serious: Yes (Hospitalization)
  Sender: FDA-Public Use
  Company Number: ANTA0600343

PATIENT
  Sex: Female

DRUGS (3)
  1. ANTARA(FENOFIBRATE) CPASULE, 250MG [Suspect]
     Indication: HYPERTRIGLYCERIDAEMIA
     Dosage: 250 MG
     Dates: start: 20031201, end: 20031214
  2. RALOXIFENE(RALOXIFENE) 60 MG [Suspect]
     Indication: OSTEOPOROSIS PROPHYLAXIS
     Dosage: 60 MG
     Dates: start: 20000101, end: 20031214
  3. RALOXIFENE HCL [Concomitant]

REACTIONS (8)
  - DRUG INTERACTION [None]
  - ERYTHEMA MULTIFORME [None]
  - HEPATIC LESION [None]
  - HEPATIC NECROSIS [None]
  - HEPATITIS CHOLESTATIC [None]
  - HEPATOTOXICITY [None]
  - LEUKOPENIA [None]
  - RASH MORBILLIFORM [None]
